FAERS Safety Report 6932661-7 (Version None)
Quarter: 2010Q3

REPORT INFORMATION
  Report Type: 
  Country: None (occurrence: None)
  Receive Date: 20100817
  Receipt Date: 20100804
  Transmission Date: 20110219
  Serious: Yes (Hospitalization, Disabling)
  Sender: FDA-Public Use
  Company Number: 2010AL000227

PATIENT
  Age: 30 Year
  Sex: Female
  Weight: 71.2147 kg

DRUGS (18)
  1. METOCLOPRAMIDE [Suspect]
     Indication: DIABETIC GASTROPARESIS
     Dosage: 10 MG;QID;PO
     Route: 047
     Dates: start: 20061109, end: 20070729
  2. LANTUS [Concomitant]
  3. TOPROL-XL [Concomitant]
  4. LEVAQUIN [Concomitant]
  5. FLUCONAZOLE [Concomitant]
  6. SULFAMETHOXAZOLE AND TRIMETHOPRIM [Concomitant]
  7. BUTALBITAL/CAFFEINE/PARACETAMOL [Concomitant]
  8. ZOLOFT [Concomitant]
  9. FLUCONAZOLE [Concomitant]
  10. CIPROFLOXACIN [Concomitant]
  11. LISINOPRIL [Concomitant]
  12. NOVOLIN 70/30 [Concomitant]
  13. NOVOIN NPH [Concomitant]
  14. RESTASIS [Concomitant]
  15. MACROBID [Concomitant]
  16. ZELNORM /USA/ [Concomitant]
  17. HUMALOG [Concomitant]
  18. PREV MEDS [Concomitant]

REACTIONS (60)
  - ABDOMINAL PAIN [None]
  - ABSCESS [None]
  - ACTIVITIES OF DAILY LIVING IMPAIRED [None]
  - ANAEMIA [None]
  - ANION GAP INCREASED [None]
  - ANXIETY [None]
  - BLEPHAROSPASM [None]
  - BLOOD ALKALINE PHOSPHATASE INCREASED [None]
  - BLOOD BILIRUBIN ABNORMAL [None]
  - BLOOD CALCIUM INCREASED [None]
  - BLOOD CHLORIDE DECREASED [None]
  - BLOOD COPPER INCREASED [None]
  - BLOOD GLUCOSE DECREASED [None]
  - BLOOD LACTATE DEHYDROGENASE INCREASED [None]
  - BLOOD POTASSIUM DECREASED [None]
  - BLOOD POTASSIUM INCREASED [None]
  - BLOOD SODIUM DECREASED [None]
  - BLOOD TRIGLYCERIDES INCREASED [None]
  - BLOOD UREA INCREASED [None]
  - CELLULITIS [None]
  - CEREBRAL INFARCTION [None]
  - CERULOPLASMIN INCREASED [None]
  - CHOREOATHETOSIS [None]
  - COORDINATION ABNORMAL [None]
  - DEPRESSION [None]
  - DYSKINESIA [None]
  - DYSTONIA [None]
  - EXTRAPYRAMIDAL DISORDER [None]
  - FAECES DISCOLOURED [None]
  - GAIT DISTURBANCE [None]
  - HAEMATOCRIT INCREASED [None]
  - HAEMOGLOBIN DECREASED [None]
  - HEADACHE [None]
  - HYPERGLYCAEMIA [None]
  - HYPERHIDROSIS [None]
  - HYPERREFLEXIA [None]
  - INJURY [None]
  - INSOMNIA [None]
  - LYMPHOCYTE COUNT DECREASED [None]
  - MEAN CELL VOLUME ABNORMAL [None]
  - MUSCLE TWITCHING [None]
  - MUSCULOSKELETAL CHEST PAIN [None]
  - NAUSEA [None]
  - NERVOUS SYSTEM DISORDER [None]
  - NEUTROPHIL COUNT INCREASED [None]
  - OPISTHOTONUS [None]
  - PAIN [None]
  - PARKINSONISM [None]
  - PCO2 DECREASED [None]
  - PROTEIN TOTAL INCREASED [None]
  - RED BLOOD CELL SEDIMENTATION RATE INCREASED [None]
  - RESTLESSNESS [None]
  - TARDIVE DYSKINESIA [None]
  - TORTICOLLIS [None]
  - TREMOR [None]
  - URINARY TRACT INFECTION [None]
  - VITAMIN B12 INCREASED [None]
  - VOMITING [None]
  - WEIGHT DECREASED [None]
  - WHITE BLOOD CELL COUNT INCREASED [None]
